FAERS Safety Report 6019264-6 (Version None)
Quarter: 2008Q4

REPORT INFORMATION
  Report Type: 
  Country: None (occurrence: None)
  Receive Date: 20081219
  Receipt Date: 20080620
  Transmission Date: 20090506
  Serious: Yes (Hospitalization)
  Sender: FDA-Public Use
  Company Number: US200806005078

PATIENT
  Age: 11 Year
  Sex: Female

DRUGS (4)
  1. HUMALOG PEN [Suspect]
     Dates: start: 20080603
  2. HUMALOG [Suspect]
     Dates: start: 20040101
  3. HUMULIN N [Suspect]
     Dates: end: 20080603
  4. LANTUS [Concomitant]

REACTIONS (2)
  - BLOOD GLUCOSE INCREASED [None]
  - INJECTION SITE PAIN [None]
